FAERS Safety Report 24659212 (Version 3)
Quarter: 2025Q1

REPORT INFORMATION
  Report Type: Spontaneous
  Country: CN (occurrence: CN)
  Receive Date: 20241125
  Receipt Date: 20250317
  Transmission Date: 20250409
  Serious: Yes (Hospitalization, Other)
  Sender: PFIZER
  Company Number: CN-PFIZER INC-PV202300125127

PATIENT
  Age: 40 Year
  Sex: Male

DRUGS (9)
  1. XYNTHA [Suspect]
     Active Substance: MOROCTOCOG ALFA
     Indication: Haemophilia
     Dosage: QD, MEDICATION FOR 4 DAYS
     Route: 041
     Dates: start: 20230510
  2. XYNTHA [Suspect]
     Active Substance: MOROCTOCOG ALFA
     Dosage: 1500 IU, 1X/DAY
     Route: 042
     Dates: start: 20231108
  3. XYNTHA [Suspect]
     Active Substance: MOROCTOCOG ALFA
     Dosage: 1500 IU, 1X/DAY
     Route: 042
     Dates: start: 20231130
  4. XYNTHA [Suspect]
     Active Substance: MOROCTOCOG ALFA
     Dosage: 1000 IU, 1X/DAY
     Route: 042
     Dates: start: 20231130
  5. XYNTHA [Suspect]
     Active Substance: MOROCTOCOG ALFA
     Dosage: 500 IU, 1X/DAY
     Route: 042
     Dates: start: 20240510
  6. XYNTHA [Suspect]
     Active Substance: MOROCTOCOG ALFA
     Dosage: 1500 IU, 1X/DAY
     Route: 042
     Dates: start: 20240812
  7. XYNTHA [Suspect]
     Active Substance: MOROCTOCOG ALFA
     Dosage: 1500 IU, 1X/DAY
     Route: 042
     Dates: start: 20241118
  8. XYNTHA [Suspect]
     Active Substance: MOROCTOCOG ALFA
     Dosage: 1500 IU, 1X/DAY
     Route: 042
     Dates: start: 20241205
  9. XYNTHA [Suspect]
     Active Substance: MOROCTOCOG ALFA
     Dosage: 1500 IU, 1X/DAY
     Route: 042
     Dates: start: 20241230

REACTIONS (8)
  - Haemorrhage [Recovering/Resolving]
  - Gastrointestinal haemorrhage [Recovering/Resolving]
  - Conjunctival haemorrhage [Recovering/Resolving]
  - Joint swelling [Recovering/Resolving]
  - Arthralgia [Recovering/Resolving]
  - Joint swelling [Unknown]
  - Haemarthrosis [Unknown]
  - Off label use [Unknown]

NARRATIVE: CASE EVENT DATE: 20230510
